FAERS Safety Report 5161031-X (Version None)
Quarter: 2006Q4

REPORT INFORMATION
  Report Type: 
  Country: None (occurrence: None)
  Receive Date: 20061130
  Receipt Date: 20060830
  Transmission Date: 20070319
  Serious: Yes (Other)
  Sender: FDA-Public Use
  Company Number: IT-BAYER-200613783GDS

PATIENT
  Age: 62 Year
  Sex: Male

DRUGS (1)
  1. CIPROFLOXACIN HYDROCHLORIDE [Suspect]
     Indication: SURGERY
     Route: 048
     Dates: start: 20060713, end: 20060713

REACTIONS (1)
  - RASH ERYTHEMATOUS [None]
